FAERS Safety Report 12873421 (Version 1)
Quarter: 2016Q4

REPORT INFORMATION
  Report Type: Spontaneous
  Country: US (occurrence: US)
  Receive Date: 20161021
  Receipt Date: 20161021
  Transmission Date: 20170207
  Serious: Yes (Hospitalization, Other)
  Sender: FDA-Public Use
  Company Number: US-SAOL THERAPEUTICS-2016SAO00818

PATIENT
  Age: 24 Year
  Sex: Female
  Weight: 45.35 kg

DRUGS (12)
  1. BACLOFEN. [Suspect]
     Active Substance: BACLOFEN
     Indication: MUSCLE SPASTICITY
     Dosage: 626 ?G, \DAY
     Route: 037
  2. AMITRIPTYLINE HCL [Concomitant]
     Active Substance: AMITRIPTYLINE
     Dosage: 25 MG, 1X/DAY
     Route: 048
  3. ALLEGRA ALLERGY [Concomitant]
     Active Substance: FEXOFENADINE HYDROCHLORIDE
     Dosage: 180 MG, 1X/DAY
     Route: 048
  4. CENTRUM TABS [Concomitant]
     Dosage: 1 TABLETS, 1X/DAY
     Route: 048
  5. FLONASE [Concomitant]
     Active Substance: FLUTICASONE PROPIONATE
     Dosage: 1 SPRAY EACH NOSTRIL
     Route: 045
  6. KEFLEX [Concomitant]
     Active Substance: CEPHALEXIN
     Dosage: 500 MG, 4X/DAY
     Route: 048
  7. HYDROCODONE-ACETAMINOPHEN [Concomitant]
     Active Substance: ACETAMINOPHEN\HYDROCODONE
     Dosage: 1 TABLETS, UP TO 6X/DAY
     Route: 048
  8. SINGULAIR [Concomitant]
     Active Substance: MONTELUKAST SODIUM
     Dosage: 10 MG, AS DIRECTED
     Route: 048
  9. PANTOPRAZOLE SODIUM. [Concomitant]
     Active Substance: PANTOPRAZOLE SODIUM
     Dosage: 20 MG, 1X/DAY
     Route: 048
  10. BACLOFEN. [Suspect]
     Active Substance: BACLOFEN
     Indication: MULTIPLE SCLEROSIS
     Dosage: 349.5 ?G\DAY
     Route: 037
     Dates: start: 20161001
  11. BACLOFEN. [Suspect]
     Active Substance: BACLOFEN
     Indication: CEREBRAL PALSY
  12. BACLOFEN. [Suspect]
     Active Substance: BACLOFEN
     Indication: PARAPARESIS

REACTIONS (11)
  - Device dislocation [Unknown]
  - Complication associated with device [Unknown]
  - Overdose [Recovering/Resolving]
  - Paralysis [Recovered/Resolved]
  - Hypotonia [Recovering/Resolving]
  - Fall [Unknown]
  - Mobility decreased [Unknown]
  - Vomiting [Recovered/Resolved]
  - Asthenia [Recovering/Resolving]
  - Encephalopathy [Unknown]
  - Incorrect route of drug administration [Unknown]

NARRATIVE: CASE EVENT DATE: 20161001
